FAERS Safety Report 4300193-0 (Version None)
Quarter: 2004Q1

REPORT INFORMATION
  Report Type: 
  Country: None (occurrence: None)
  Receive Date: 20040218
  Receipt Date: 20040218
  Transmission Date: 20041129
  Serious: No
  Sender: FDA-Public Use
  Company Number: None

PATIENT
  Age: 50 Year
  Sex: Female
  Weight: 89.3586 kg

DRUGS (2)
  1. TIAZAC [Suspect]
     Indication: HYPERTENSION
     Dosage: 120 MG PO QD
     Route: 048
  2. DILTIAZEM [Suspect]
     Indication: HYPERTENSION
     Dosage: 120 MG PO QD
     Route: 048

REACTIONS (2)
  - HEADACHE [None]
  - PHARMACEUTICAL PRODUCT COMPLAINT [None]
